FAERS Safety Report 15172334 (Version 3)
Quarter: 2019Q4

REPORT INFORMATION
  Report Type: Spontaneous
  Country: CA (occurrence: CA)
  Receive Date: 20180720
  Receipt Date: 20191112
  Transmission Date: 20200122
  Serious: Yes (Other)
  Sender: FDA-Public Use
  Company Number: CA-PFIZER INC-2018287137

PATIENT
  Age: 64 Year
  Sex: Female

DRUGS (3)
  1. HYDROXYCHLOROQUINE [Concomitant]
     Active Substance: HYDROXYCHLOROQUINE
     Indication: RHEUMATOID ARTHRITIS
     Dosage: 400 MG, UNK
     Dates: start: 201703
  2. METHOTREXATE SODIUM. [Suspect]
     Active Substance: METHOTREXATE SODIUM
     Indication: RHEUMATOID ARTHRITIS
     Dosage: UNK
  3. SULFASALAZINE. [Concomitant]
     Active Substance: SULFASALAZINE
     Indication: RHEUMATOID ARTHRITIS
     Dosage: 1 G, 2X/DAY
     Dates: start: 201703

REACTIONS (3)
  - Hepatic steatosis [Unknown]
  - Hepatic enzyme increased [Unknown]
  - Drug intolerance [Unknown]
